FAERS Safety Report 10262337 (Version 1)
Quarter: 2014Q2

REPORT INFORMATION
  Report Type: Spontaneous
  Country: US (occurrence: US)
  Receive Date: 20140626
  Receipt Date: 20140626
  Transmission Date: 20141212
  Serious: Yes (Other)
  Sender: FDA-Public Use
  Company Number: US-B.I. PHARMACEUTICALS,INC./RIDGEFIELD-2014-BI-28403BP

PATIENT
  Sex: Female
  Weight: 69 kg

DRUGS (14)
  1. SPIRIVA [Suspect]
     Indication: CHRONIC OBSTRUCTIVE PULMONARY DISEASE
     Dosage: 18 MCG
     Route: 055
     Dates: start: 2006
  2. ADVAIR [Concomitant]
     Indication: CHRONIC OBSTRUCTIVE PULMONARY DISEASE
     Dosage: DOSE PER APPLICATION:500MCG/50MCG; DAILY DOSE: 1000MCG/100MCG
     Route: 055
  3. VYTORIN [Concomitant]
     Dosage: DOSE PER APPLICATION: 10MG/40MG; DAILY DOSE: 10MG/40MG
     Route: 048
  4. RAMIPRIL [Concomitant]
     Dosage: 5 MG
     Route: 048
  5. DONEPEZIL [Concomitant]
     Dosage: 10 MG
     Route: 048
  6. OMEPRAZOLE [Concomitant]
     Dosage: 20 MG
     Route: 048
  7. RALOXIFENE [Concomitant]
     Dosage: 60 MG
     Route: 048
  8. FERROTABS [Concomitant]
     Indication: SUPPLEMENTATION THERAPY
     Route: 048
  9. ATENOLOL [Concomitant]
     Dosage: 25 MG
     Route: 048
  10. VITAMINS [Concomitant]
     Indication: SUPPLEMENTATION THERAPY
     Route: 048
  11. ASPIRIN [Concomitant]
     Dosage: 81 MG
     Route: 048
  12. VENLAFAXINE [Concomitant]
     Indication: DEPRESSION
     Dosage: 150 MG
     Route: 048
     Dates: start: 2006
  13. VENLAFAXINE [Concomitant]
     Indication: DEPRESSED MOOD
  14. CALCIUM [Concomitant]
     Dosage: 1200 MG
     Route: 048

REACTIONS (1)
  - Dementia [Not Recovered/Not Resolved]
